FAERS Safety Report 6478658-5 (Version None)
Quarter: 2009Q4

REPORT INFORMATION
  Report Type: 
  Country: None (occurrence: None)
  Receive Date: 20091123
  Receipt Date: 20090810
  Transmission Date: 20100525
  Serious: No
  Sender: FDA-Public Use
  Company Number: 8050329

PATIENT
  Age: 44 Year
  Sex: Female
  Weight: 90.72 kg

DRUGS (2)
  1. CIMZIA [Suspect]
     Indication: CROHN'S DISEASE
     Dosage: 400 MG SC
     Route: 058
     Dates: start: 20090725
  2. VITAMIN B-12 [Concomitant]

REACTIONS (5)
  - COUGH [None]
  - HEADACHE [None]
  - LYMPHADENOPATHY [None]
  - MYALGIA [None]
  - OROPHARYNGEAL PAIN [None]
